FAERS Safety Report 19101019 (Version 3)
Quarter: 2021Q2

REPORT INFORMATION
  Report Type: Other
  Country: JP (occurrence: JP)
  Receive Date: 20210407
  Receipt Date: 20210427
  Transmission Date: 20210717
  Serious: Yes (Other)
  Sender: FDA-Public Use
  Company Number: JP-ROCHE-2804975

PATIENT
  Age: 7 Decade
  Sex: Female

DRUGS (4)
  1. DOCETAXEL TRIHYDRATE [Concomitant]
     Active Substance: DOCETAXEL
     Indication: HER2 POSITIVE BREAST CANCER
     Dosage: UNCERTAIN DOSAGE FOR 8 CYCLES
     Route: 041
  2. PERJETA [Suspect]
     Active Substance: PERTUZUMAB
     Indication: HER2 POSITIVE BREAST CANCER
     Dosage: UNCERTAIN DOSAGE FOR 8 CYCLES
     Route: 041
  3. DOCETAXEL TRIHYDRATE [Concomitant]
     Active Substance: DOCETAXEL
     Route: 041
  4. HERCEPTIN [Suspect]
     Active Substance: TRASTUZUMAB
     Indication: HER2 POSITIVE BREAST CANCER
     Dosage: UNCERTAIN DOSAGE FOR 8 CYCLES
     Route: 041

REACTIONS (2)
  - Metastases to skin [Unknown]
  - Metastases to central nervous system [Unknown]
